FAERS Safety Report 26051077 (Version 1)
Quarter: 2025Q4

REPORT INFORMATION
  Report Type: Spontaneous
  Country: US (occurrence: US)
  Receive Date: 20251117
  Receipt Date: 20251117
  Transmission Date: 20260118
  Serious: Yes (Other)
  Sender: ABBVIE
  Company Number: US-ABBVIE-6548532

PATIENT
  Age: 77 Year
  Sex: Female

DRUGS (4)
  1. OZURDEX [Suspect]
     Active Substance: DEXAMETHASONE
     Indication: Retinal vein occlusion
     Dosage: TIME INTERVAL: AS NECESSARY: EVERY 3 MONTHS
     Route: 050
     Dates: start: 20250605
  2. OZURDEX [Suspect]
     Active Substance: DEXAMETHASONE
     Indication: Macular oedema
  3. AVASTIN [Concomitant]
     Active Substance: BEVACIZUMAB
     Indication: Product used for unknown indication
     Dosage: IN RIGHT EYE
     Dates: start: 20250626
  4. AVASTIN [Concomitant]
     Active Substance: BEVACIZUMAB
     Indication: Product used for unknown indication
     Dosage: IN RIGHT EYE
     Dates: start: 20250724

REACTIONS (9)
  - Endophthalmitis [Unknown]
  - Vitreous floaters [Unknown]
  - Visual impairment [Unknown]
  - Iritis [Recovered/Resolved]
  - Staphylococcal infection [Unknown]
  - Eye inflammation [Not Recovered/Not Resolved]
  - Foreign body [Unknown]
  - Eye irritation [Unknown]
  - Visual impairment [Recovering/Resolving]

NARRATIVE: CASE EVENT DATE: 20250626
